FAERS Safety Report 4429373-0 (Version None)
Quarter: 2004Q3

REPORT INFORMATION
  Report Type: 
  Country: None (occurrence: None)
  Receive Date: 20040816
  Receipt Date: 20040809
  Transmission Date: 20050211
  Serious: No
  Sender: FDA-Public Use
  Company Number: 2004-119271-NL

PATIENT
  Age: 82 Year
  Sex: Female

DRUGS (1)
  1. MIRTAZAPINE [Suspect]
     Indication: DEPRESSION
     Dosage: 10 MG ORAL
     Route: 048
     Dates: start: 20040527, end: 20040707

REACTIONS (4)
  - DISINHIBITION [None]
  - EMOTIONAL DISTRESS [None]
  - EXCESSIVE MASTURBATION [None]
  - LIBIDO INCREASED [None]
